FAERS Safety Report 4548012-1 (Version None)
Quarter: 2004Q4

REPORT INFORMATION
  Report Type: 
  Country: None (occurrence: None)
  Receive Date: 20041227
  Receipt Date: 20040922
  Transmission Date: 20050328
  Serious: No
  Sender: FDA-Public Use
  Company Number: 04P-163-0274170-00

PATIENT
  Age: 74 Year
  Sex: Female
  Weight: 80.7403 kg

DRUGS (7)
  1. HUMIRA [Suspect]
     Indication: RHEUMATOID ARTHRITIS
     Dosage: 40 MG, 1 IN 2 WK
     Dates: start: 20030201
  2. METHOTREXATE [Concomitant]
  3. PREDNISONE [Concomitant]
  4. PANTOPRAZOLE [Concomitant]
  5. ALENDRONATE SODIUM [Concomitant]
  6. MULTIVITAMIN [Concomitant]
  7. LEVOTHYROXINE SODIUM [Concomitant]

REACTIONS (3)
  - INJECTION SITE PAIN [None]
  - INJECTION SITE PRURITUS [None]
  - INJECTION SITE RASH [None]
